FAERS Safety Report 11654355 (Version 1)
Quarter: 2015Q4

REPORT INFORMATION
  Report Type: Report from Study
  Country: US (occurrence: US)
  Receive Date: 20151023
  Receipt Date: 20151023
  Transmission Date: 20160304
  Serious: Yes (Other)
  Sender: FDA-Public Use
  Company Number: US-AMGEN-USASL2015110416

PATIENT
  Age: 58 Year

DRUGS (2)
  1. METHOTREXATE [Suspect]
     Active Substance: METHOTREXATE
     Indication: PRODUCT USED FOR UNKNOWN INDICATION
     Dosage: UNK
     Route: 065
  2. ENBREL [Suspect]
     Active Substance: ETANERCEPT
     Indication: PSORIASIS
     Dosage: UNK UNK, 2 TIMES/WK
     Route: 065
     Dates: start: 201507

REACTIONS (10)
  - Rash erythematous [Unknown]
  - Haematochezia [Unknown]
  - Hepatic cirrhosis [Unknown]
  - Dry skin [Unknown]
  - Eyelid exfoliation [Unknown]
  - Drug-induced liver injury [Unknown]
  - Pruritus [Unknown]
  - Skin exfoliation [Unknown]
  - Hernia [Unknown]
  - Papule [Unknown]

NARRATIVE: CASE EVENT DATE: 2015
